FAERS Safety Report 6909277-1 (Version None)
Quarter: 2010Q3

REPORT INFORMATION
  Report Type: 
  Country: None (occurrence: None)
  Receive Date: 20100805
  Receipt Date: 20100726
  Transmission Date: 20110219
  Serious: Yes (Hospitalization, Other)
  Sender: FDA-Public Use
  Company Number: PHHY2010CA02137

PATIENT
  Sex: Female

DRUGS (7)
  1. SANDOSTATIN LAR [Suspect]
     Indication: ANGIODYSPLASIA
     Dosage: 20 MG, QMO
     Route: 030
     Dates: start: 20090505
  2. SANDOSTATIN LAR [Suspect]
     Dosage: 20 MG, EVERY 4 WEEKS
     Route: 030
  3. BLOOD TRANSFUSION, AUXILIARY PRODUCTS [Concomitant]
  4. HYZAAR [Concomitant]
  5. METFORMIN HCL [Concomitant]
  6. FERROUS SULFATE [Concomitant]
  7. PANTOPRAZOLE [Concomitant]

REACTIONS (9)
  - ANAEMIA [None]
  - ASTHENIA [None]
  - CONFUSIONAL STATE [None]
  - DEPRESSED LEVEL OF CONSCIOUSNESS [None]
  - FATIGUE [None]
  - HAEMOGLOBIN DECREASED [None]
  - HAEMORRHAGE [None]
  - MEMORY IMPAIRMENT [None]
  - NERVOUS SYSTEM DISORDER [None]
